FAERS Safety Report 7832917-X (Version None)
Quarter: 2011Q4

REPORT INFORMATION
  Report Type: 
  Country: None (occurrence: None)
  Receive Date: 20111024
  Receipt Date: 20111019
  Transmission Date: 20120403
  Serious: Yes (Other)
  Sender: FDA-Public Use
  Company Number: CA-PFIZER INC-2011252000

PATIENT
  Age: 48 Year
  Sex: Female

DRUGS (1)
  1. XALATAN [Suspect]
     Indication: GLAUCOMA
     Dosage: 1 GTT IN EACH EYE 1X/DAY
     Route: 047
     Dates: start: 20070101

REACTIONS (1)
  - VISUAL FIELD TESTS ABNORMAL [None]
